FAERS Safety Report 7329258-6 (Version None)
Quarter: 2011Q1

REPORT INFORMATION
  Report Type: 
  Country: None (occurrence: None)
  Receive Date: 20110303
  Receipt Date: 20110224
  Transmission Date: 20110831
  Serious: Yes (Other)
  Sender: FDA-Public Use
  Company Number: A0916369A

PATIENT
  Sex: Male
  Weight: 75 kg

DRUGS (3)
  1. ALPRAZOLAM [Concomitant]
  2. PARNATE [Suspect]
     Indication: DEPRESSION
     Dosage: 40MG PER DAY
     Route: 048
     Dates: start: 20100201
  3. STELAZINE [Concomitant]

REACTIONS (2)
  - SUICIDAL IDEATION [None]
  - HOMICIDAL IDEATION [None]
